FAERS Safety Report 19506537 (Version 1)
Quarter: 2021Q3

REPORT INFORMATION
  Report Type: Spontaneous
  Country: US (occurrence: US)
  Receive Date: 20210708
  Receipt Date: 20210708
  Transmission Date: 20211014
  Serious: Yes (Hospitalization)
  Sender: FDA-Public Use
  Company Number: None

PATIENT
  Age: 53 Year
  Sex: Female
  Weight: 54 kg

DRUGS (1)
  1. HUMIRA [Suspect]
     Active Substance: ADALIMUMAB
     Indication: PSORIATIC ARTHROPATHY
     Dosage: ?          QUANTITY:1 INJECTION(S);OTHER FREQUENCY:2 WEEKS;?
     Route: 058
     Dates: start: 20210524

REACTIONS (9)
  - Hypersensitivity [None]
  - Abdominal pain [None]
  - Injection site swelling [None]
  - Inflammation [None]
  - Stevens-Johnson syndrome [None]
  - Spleen disorder [None]
  - Paraesthesia oral [None]
  - Rash [None]
  - Drug reaction with eosinophilia and systemic symptoms [None]

NARRATIVE: CASE EVENT DATE: 20210605
